FAERS Safety Report 25280437 (Version 1)
Quarter: 2025Q2

REPORT INFORMATION
  Report Type: Spontaneous
  Country: CN (occurrence: CN)
  Receive Date: 20250508
  Receipt Date: 20250508
  Transmission Date: 20250717
  Serious: Yes (Hospitalization)
  Sender: BEIGENE
  Company Number: CN-BEIGENE-BGN-2025-007036

PATIENT
  Age: 57 Year
  Weight: 50 kg

DRUGS (3)
  1. TISLELIZUMAB [Suspect]
     Active Substance: TISLELIZUMAB
     Indication: Keratinising squamous cell carcinoma of nasopharynx
  2. FLUOROURACIL [Suspect]
     Active Substance: FLUOROURACIL
     Indication: Keratinising squamous cell carcinoma of nasopharynx
  3. NEDAPLATIN [Suspect]
     Active Substance: NEDAPLATIN
     Indication: Keratinising squamous cell carcinoma of nasopharynx

REACTIONS (1)
  - Myelosuppression [Recovering/Resolving]
